FAERS Safety Report 16994186 (Version 2)
Quarter: 2025Q2

REPORT INFORMATION
  Report Type: Spontaneous
  Country: ES (occurrence: ES)
  Receive Date: 20191105
  Receipt Date: 20250610
  Transmission Date: 20250717
  Serious: Yes (Life-Threatening, Hospitalization)
  Sender: ROCHE
  Company Number: ES-PFIZER INC-2019151796

PATIENT
  Age: 66 Year
  Sex: Male
  Weight: 89.3 kg

DRUGS (26)
  1. CELLCEPT [Suspect]
     Active Substance: MYCOPHENOLATE MOFETIL
     Indication: Graft versus host disease
     Route: 065
     Dates: start: 20181227, end: 20190215
  2. METHOTREXATE SODIUM [Suspect]
     Active Substance: METHOTREXATE SODIUM
     Indication: Graft versus host disease
     Dosage: 30 MG, DAILY
     Route: 065
     Dates: start: 20181030, end: 20181030
  3. METHOTREXATE SODIUM [Suspect]
     Active Substance: METHOTREXATE SODIUM
     Dosage: 20 MG, DAILY
     Route: 065
     Dates: start: 20181101
  4. TACROLIMUS [Suspect]
     Active Substance: TACROLIMUS
     Indication: Graft versus host disease
     Dosage: 0.60 MG, DAILY
     Route: 042
     Dates: start: 20181029, end: 20181105
  5. TACROLIMUS [Suspect]
     Active Substance: TACROLIMUS
     Dosage: 1.00 MG, DAILY
     Route: 042
     Dates: start: 20181109, end: 20181111
  6. TACROLIMUS [Suspect]
     Active Substance: TACROLIMUS
     Dosage: 2.00 MG, DAILY
     Route: 042
     Dates: start: 20181113, end: 20181124
  7. TACROLIMUS [Suspect]
     Active Substance: TACROLIMUS
     Dosage: 0.80 MG, DAILY
     Route: 042
     Dates: start: 20181130, end: 20181201
  8. TACROLIMUS [Suspect]
     Active Substance: TACROLIMUS
     Dosage: 0.60 MG, DAILY
     Route: 042
     Dates: start: 20181202, end: 20181212
  9. TACROLIMUS [Suspect]
     Active Substance: TACROLIMUS
     Dosage: 0.80 MG, DAILY
     Route: 042
     Dates: start: 20181213, end: 20181226
  10. TACROLIMUS [Suspect]
     Active Substance: TACROLIMUS
     Dosage: 0.50 MG, DAILY
     Route: 042
     Dates: start: 20181027, end: 20181029
  11. TACROLIMUS [Suspect]
     Active Substance: TACROLIMUS
     Dosage: 0.50 MG, DAILY
     Route: 042
     Dates: start: 20181128, end: 20181129
  12. TACROLIMUS [Suspect]
     Active Substance: TACROLIMUS
     Dosage: 1.10 MG, DAILY
     Route: 042
     Dates: start: 20181105, end: 20181109
  13. TACROLIMUS [Suspect]
     Active Substance: TACROLIMUS
     Dosage: 1.20 MG, DAILY
     Route: 042
     Dates: start: 20181112, end: 20181112
  14. TACROLIMUS [Suspect]
     Active Substance: TACROLIMUS
     Dosage: 1.10 MG, DAILY
     Route: 042
     Dates: start: 20181024, end: 20181026
  15. ITACITINIB [Suspect]
     Active Substance: ITACITINIB
     Indication: Graft versus host disease
     Dosage: 200 MG, QD
     Route: 048
     Dates: start: 20181026, end: 20190214
  16. ITACITINIB [Suspect]
     Active Substance: ITACITINIB
     Dosage: REGIMEN 2
     Route: 048
     Dates: start: 20190227
  17. METFORMIN [Concomitant]
     Active Substance: METFORMIN HYDROCHLORIDE
     Dates: start: 20181115
  18. VALGANCICLOVIR [Concomitant]
     Active Substance: VALGANCICLOVIR
     Dates: start: 20190123, end: 20190202
  19. OMEPRAZOLE [Concomitant]
     Active Substance: OMEPRAZOLE
     Dates: start: 20181123
  20. ISONIAZID [Concomitant]
     Active Substance: ISONIAZID
     Dates: start: 20181115
  21. PENICILLIN G BENZATHINE [Concomitant]
     Active Substance: PENICILLIN G BENZATHINE
     Dates: start: 20181119
  22. PENTAMIDINE [Concomitant]
     Active Substance: PENTAMIDINE
     Dates: start: 20181221
  23. URSODIOL [Concomitant]
     Active Substance: URSODIOL
     Dates: start: 20181115
  24. FOLIC ACID [Concomitant]
     Active Substance: FOLIC ACID
     Dates: start: 20181115
  25. POSACONAZOLE [Concomitant]
     Active Substance: POSACONAZOLE
     Dates: start: 20181114, end: 20190202
  26. VITAMIN B6 [Concomitant]
     Active Substance: PYRIDOXINE HYDROCHLORIDE
     Dates: start: 20181115

REACTIONS (7)
  - Asthenia [Unknown]
  - Chest pain [Unknown]
  - Odynophagia [Unknown]
  - Off label use [Unknown]
  - Cough [Unknown]
  - Febrile neutropenia [Recovered/Resolved]
  - Intentional product use issue [Unknown]

NARRATIVE: CASE EVENT DATE: 20190213
